FAERS Safety Report 7273893-0 (Version None)
Quarter: 2011Q1

REPORT INFORMATION
  Report Type: 
  Country: None (occurrence: None)
  Receive Date: 20110203
  Receipt Date: 20110127
  Transmission Date: 20110831
  Serious: Yes (Other)
  Sender: FDA-Public Use
  Company Number: FR-PFIZER INC-2011019456

PATIENT
  Age: 5 Year
  Sex: Female
  Weight: 38 kg

DRUGS (2)
  1. GENOTONORM [Suspect]
     Indication: GROWTH RETARDATION
     Dosage: 11.5 MG, WEEKLY
  2. GENOTONORM [Suspect]
     Dosage: 7.7 MG, WEEKLY

REACTIONS (1)
  - WEIGHT INCREASED [None]
